FAERS Safety Report 4326831-4 (Version None)
Quarter: 2004Q1

REPORT INFORMATION
  Report Type: 
  Country: None (occurrence: None)
  Receive Date: 20040330
  Receipt Date: 20040330
  Transmission Date: 20041129
  Serious: Yes (Hospitalization)
  Sender: FDA-Public Use
  Company Number: None

PATIENT
  Age: 58 Year
  Sex: Female
  Weight: 103.6 kg

DRUGS (6)
  1. IRINOTECAN [Suspect]
     Indication: OESOPHAGEAL CARCINOMA
     Dosage: 6.5 MG/M2 , WK 1,2, IV
     Route: 042
     Dates: start: 20030815
  2. IRINOTECAN [Suspect]
     Indication: OESOPHAGEAL CARCINOMA
     Dosage: 6.5 MG/M2 , WK 1,2, IV
     Route: 042
     Dates: start: 20030829
  3. CISPLATIN [Suspect]
     Indication: OESOPHAGEAL CARCINOMA
     Dosage: 30 MG/M2 , WK 1 AND 2 , IV
     Route: 042
     Dates: start: 20030815
  4. CISPLATIN [Suspect]
     Indication: OESOPHAGEAL CARCINOMA
     Dosage: 30 MG/M2 , WK 1 AND 2 , IV
     Route: 042
     Dates: start: 20030829
  5. CELEBREX [Suspect]
     Indication: OESOPHAGEAL CARCINOMA
     Dosage: 400 MG BID PO
     Route: 048
  6. RADIATION THERAPY [Suspect]
     Indication: OESOPHAGEAL CARCINOMA
     Dosage: DAY 1-5: 50-4GM

REACTIONS (8)
  - ARTERIAL DISORDER [None]
  - CATHETER SITE ERYTHEMA [None]
  - CATHETER SITE PAIN [None]
  - DRUG LEVEL BELOW THERAPEUTIC [None]
  - DYSPNOEA [None]
  - NAUSEA [None]
  - RASH MACULAR [None]
  - VOMITING [None]
